FAERS Safety Report 6110885-9 (Version None)
Quarter: 2009Q1

REPORT INFORMATION
  Report Type: 
  Country: None (occurrence: None)
  Receive Date: 20090311
  Receipt Date: 20090224
  Transmission Date: 20090719
  Serious: Yes (Death, Disabling, Other)
  Sender: FDA-Public Use
  Company Number: US-BAYER-200836004NA

PATIENT
  Age: 56 Year
  Sex: Male
  Weight: 96 kg

DRUGS (20)
  1. MAGNEVIST [Suspect]
     Indication: NUCLEAR MAGNETIC RESONANCE IMAGING ABDOMINAL
     Dates: start: 20051102, end: 20051102
  2. MAGNEVIST [Suspect]
     Dates: start: 20060518, end: 20060518
  3. MAGNEVIST [Suspect]
     Dates: start: 20060713, end: 20060713
  4. MAGNEVIST [Suspect]
     Dates: start: 20061017, end: 20061017
  5. PROGRAF [Concomitant]
     Dosage: AS USED: 1 MG
  6. CELLCEPT [Concomitant]
     Dosage: AS USED: 500 MG
  7. PREDNISONE [Concomitant]
     Dosage: TOTAL DAILY DOSE: 7.5 MG
  8. PRINIVIL [Concomitant]
  9. SODIUM BICARBONATE [Concomitant]
  10. TIAZAC [Concomitant]
  11. BACTRIM [Concomitant]
  12. ASPIRIN [Concomitant]
  13. AVALIDE [Concomitant]
  14. CLONIDINE [Concomitant]
  15. RENAGEL [Concomitant]
     Route: 048
  16. LASIX [Concomitant]
  17. EPOGEN [Concomitant]
  18. SYNTHROID [Concomitant]
  19. LOPRESSOR [Concomitant]
  20. SENSIPAR [Concomitant]
     Route: 048

REACTIONS (25)
  - ANHEDONIA [None]
  - ANXIETY [None]
  - ASTHENIA [None]
  - DEPRESSION [None]
  - DRY SKIN [None]
  - FIBROSIS [None]
  - GAIT DISTURBANCE [None]
  - GENERAL PHYSICAL HEALTH DETERIORATION [None]
  - INJURY [None]
  - JOINT RANGE OF MOTION DECREASED [None]
  - MOBILITY DECREASED [None]
  - MOTOR DYSFUNCTION [None]
  - MUSCLE TIGHTNESS [None]
  - MUSCULOSKELETAL STIFFNESS [None]
  - NEPHROGENIC SYSTEMIC FIBROSIS [None]
  - OEDEMA PERIPHERAL [None]
  - PAIN [None]
  - PARAESTHESIA [None]
  - PRURITUS [None]
  - SCAR [None]
  - SENSORY LOSS [None]
  - SKIN DISCOLOURATION [None]
  - SKIN HYPERTROPHY [None]
  - SKIN INDURATION [None]
  - SKIN TIGHTNESS [None]
